FAERS Safety Report 12759893 (Version 2)
Quarter: 2018Q2

REPORT INFORMATION
  Report Type: Report from Study
  Country: US (occurrence: US)
  Receive Date: 20160919
  Receipt Date: 20180529
  Transmission Date: 20180711
  Serious: Yes (Hospitalization, Other)
  Sender: FDA-Public Use
  Company Number: PHHO2016US008233

PATIENT
  Age: 67 Year
  Sex: Female
  Weight: 69.31 kg

DRUGS (7)
  1. PAZOPANIB [Suspect]
     Active Substance: PAZOPANIB
     Dosage: 3000 MG, UNK
     Route: 048
     Dates: start: 20160504, end: 20160509
  2. DOXORUBICIN [Suspect]
     Active Substance: DOXORUBICIN
     Dosage: 132.76 MG
     Route: 042
     Dates: start: 20160503, end: 20160504
  3. IFOSFAMIDE. [Suspect]
     Active Substance: IFOSFAMIDE
     Dosage: 8850 MG
     Route: 042
     Dates: start: 20160504, end: 20160504
  4. IFOSFAMIDE. [Suspect]
     Active Substance: IFOSFAMIDE
     Indication: SOFT TISSUE NEOPLASM
     Dosage: 2500 MG/M2, QD
     Route: 042
     Dates: start: 20160412
  5. DOXORUBICIN [Suspect]
     Active Substance: DOXORUBICIN
     Indication: SOFT TISSUE NEOPLASM
     Dosage: 37.5 MG/M2, QD
     Route: 042
     Dates: start: 20160412
  6. PAZOPANIB [Suspect]
     Active Substance: PAZOPANIB
     Indication: SOFT TISSUE NEOPLASM
     Dosage: 350 MG/M2, QD
     Route: 048
     Dates: start: 20160412
  7. PAZOPANIB [Suspect]
     Active Substance: PAZOPANIB
     Dosage: 600 MG, UNK
     Route: 048
     Dates: start: 20160503, end: 20160504

REACTIONS (4)
  - Pseudomonas infection [Recovering/Resolving]
  - Soft tissue necrosis [Recovered/Resolved]
  - Sepsis [Recovered/Resolved]
  - Fatigue [Recovering/Resolving]

NARRATIVE: CASE EVENT DATE: 20160511
